FAERS Safety Report 4935784-7 (Version None)
Quarter: 2006Q1

REPORT INFORMATION
  Report Type: 
  Country: None (occurrence: None)
  Receive Date: 20060307
  Receipt Date: 20051201
  Transmission Date: 20060701
  Serious: No
  Sender: FDA-Public Use
  Company Number: US-GLAXOSMITHKLINE-A0585473A

PATIENT
  Age: 57 Year
  Sex: Female

DRUGS (4)
  1. REQUIP [Suspect]
     Indication: RESTLESS LEGS SYNDROME
     Dosage: 50MG PER DAY
     Route: 048
     Dates: start: 20051001
  2. DITROPAN [Concomitant]
  3. PAXIL CR [Concomitant]
     Route: 048
  4. VYTORIN [Concomitant]

REACTIONS (1)
  - PARAESTHESIA [None]
